FAERS Safety Report 11865463 (Version 1)
Quarter: 2015Q4

REPORT INFORMATION
  Report Type: Report from Study
  Country: BR (occurrence: BR)
  Receive Date: 20151223
  Receipt Date: 20151223
  Transmission Date: 20160305
  Serious: Yes (Hospitalization)
  Sender: FDA-Public Use
  Company Number: BR-ABBVIE-15K-020-1523640-00

PATIENT
  Age: 67 Year
  Sex: Female

DRUGS (1)
  1. HUMIRA [Suspect]
     Active Substance: ADALIMUMAB
     Indication: RHEUMATOID ARTHRITIS
     Route: 058
     Dates: start: 20140918

REACTIONS (5)
  - Pneumonia [Unknown]
  - Malaise [Unknown]
  - Drug effect incomplete [Unknown]
  - Immunodeficiency [Unknown]
  - Arthralgia [Unknown]

NARRATIVE: CASE EVENT DATE: 201502
